FAERS Safety Report 8305218-3 (Version None)
Quarter: 2012Q2

REPORT INFORMATION
  Report Type: 
  Country: None (occurrence: None)
  Receive Date: 20120423
  Receipt Date: 20120417
  Transmission Date: 20120825
  Serious: Yes (Life-Threatening, Other)
  Sender: FDA-Public Use
  Company Number: US-ASTRAZENECA-2011SE45109

PATIENT
  Age: 40 Year
  Sex: Male

DRUGS (7)
  1. SYMBICORT [Suspect]
     Route: 055
  2. NEXIUM [Suspect]
     Route: 048
  3. CRESTOR [Concomitant]
     Route: 048
  4. OXYCODONE HCL [Suspect]
     Route: 065
  5. SEROQUEL [Concomitant]
  6. WELLBUTRIN [Suspect]
     Route: 065
  7. TRAZODONE HCL [Suspect]
     Route: 065

REACTIONS (4)
  - ANXIETY [None]
  - OVERDOSE [None]
  - SUICIDE ATTEMPT [None]
  - DEPRESSION [None]
